FAERS Safety Report 5355241-6 (Version None)
Quarter: 2007Q2

REPORT INFORMATION
  Report Type: 
  Country: None (occurrence: None)
  Receive Date: 20070525
  Receipt Date: 20070326
  Transmission Date: 20071010
  Serious: Yes (Other)
  Sender: FDA-Public Use
  Company Number: GP-07-03-0003

PATIENT
  Age: 58 Year
  Sex: Male

DRUGS (8)
  1. ZONISAMIDE [Suspect]
     Indication: BACK PAIN
     Dosage: 100 MG QD / BID PO
     Route: 048
     Dates: start: 20070308, end: 20070323
  2. VYTORIN [Concomitant]
  3. LOTREL (AMLODIPINE BESYLATE/BENAZEPRIL HCL) [Concomitant]
  4. PREVACID [Concomitant]
  5. MULTI-VITAMIN [Concomitant]
  6. LOW DOSE ASPIRIN [Concomitant]
  7. CALCIUM SUPPLEMENT [Concomitant]
  8. GLUCOSAMINE [Concomitant]

REACTIONS (6)
  - ANXIETY [None]
  - CONFUSIONAL STATE [None]
  - COUGH [None]
  - DYSPNOEA [None]
  - NERVOUSNESS [None]
  - RASH [None]
